FAERS Safety Report 5254614-X (Version None)
Quarter: 2007Q1

REPORT INFORMATION
  Report Type: 
  Country: None (occurrence: None)
  Receive Date: 20061201
  Receipt Date: 20060905
  Transmission Date: 20070707
  Serious: No
  Sender: FDA-Public Use
  Company Number: 2006PV020711

PATIENT
  Age: 57 Year
  Sex: Female
  Weight: 120.2032 kg

DRUGS (4)
  1. BYETTA [Suspect]
     Indication: DIABETES MELLITUS
     Dosage: SEE IMAGE
     Route: 058
     Dates: start: 20051101, end: 20051201
  2. BYETTA [Suspect]
     Indication: DIABETES MELLITUS
     Dosage: SEE IMAGE
     Route: 058
     Dates: start: 20051201
  3. AVANDIA [Concomitant]
  4. METFORMIN HCL [Concomitant]

REACTIONS (2)
  - INJECTION SITE IRRITATION [None]
  - WEIGHT DECREASED [None]
